FAERS Safety Report 6494171-3 (Version None)
Quarter: 2009Q4

REPORT INFORMATION
  Report Type: 
  Country: None (occurrence: None)
  Receive Date: 20091214
  Receipt Date: 20090114
  Transmission Date: 20100525
  Serious: No
  Sender: FDA-Public Use
  Company Number: US-BRISTOL-MYERS SQUIBB COMPANY-14471254

PATIENT
  Age: 51 Year
  Sex: Female

DRUGS (12)
  1. ABILIFY [Suspect]
     Indication: DEPRESSION
     Dates: start: 20090113
  2. NORTRIPTYLINE [Concomitant]
  3. WELLBUTRIN [Concomitant]
  4. CYMBALTA [Concomitant]
  5. KLONOPIN [Concomitant]
  6. LYRICA [Concomitant]
  7. BACLOFEN [Concomitant]
  8. SOMA [Concomitant]
  9. VICODIN [Concomitant]
  10. ROBAXIN [Concomitant]
  11. FLEXERIL [Concomitant]
  12. FENTANYL [Concomitant]

REACTIONS (2)
  - DRY MOUTH [None]
  - DYSPHAGIA [None]
